FAERS Safety Report 6026142-5 (Version None)
Quarter: 2008Q4

REPORT INFORMATION
  Report Type: 
  Country: None (occurrence: None)
  Receive Date: 20081230
  Receipt Date: 20081219
  Transmission Date: 20090506
  Serious: Yes (Hospitalization)
  Sender: FDA-Public Use
  Company Number: DS_32906_2008

PATIENT
  Age: 41 Year
  Sex: Female

DRUGS (11)
  1. ATIVAN [Suspect]
     Indication: AGITATION
     Dosage: (8 MG  ORAL), (6 MG QD,ORAL), (3 MG QD, ORAL), (8 MG QD,  ORAL)
     Route: 048
     Dates: end: 19940101
  2. ATIVAN [Suspect]
     Indication: AGITATION
     Dosage: (8 MG  ORAL), (6 MG QD,ORAL), (3 MG QD, ORAL), (8 MG QD,  ORAL)
     Route: 048
     Dates: start: 19940608, end: 19940706
  3. ATIVAN [Suspect]
     Indication: AGITATION
     Dosage: (8 MG  ORAL), (6 MG QD,ORAL), (3 MG QD, ORAL), (8 MG QD,  ORAL)
     Route: 048
     Dates: start: 19940707, end: 19940709
  4. ATIVAN [Suspect]
     Indication: AGITATION
     Dosage: (8 MG  ORAL), (6 MG QD,ORAL), (3 MG QD, ORAL), (8 MG QD,  ORAL)
     Route: 048
     Dates: start: 19940710, end: 19940714
  5. BENADRYL [Suspect]
     Indication: DRUG USE FOR UNKNOWN INDICATION
     Dosage: (50 MA QD)
     Dates: start: 19940608, end: 19940716
  6. RISPERDAL [Suspect]
     Indication: SCHIZOPHRENIA
     Dosage: (2 MG QD ORAL); (4 MG QD ORAL); (6 MG QD ORAL)
     Route: 048
     Dates: start: 19940705, end: 19940706
  7. RISPERDAL [Suspect]
     Indication: SCHIZOPHRENIA
     Dosage: (2 MG QD ORAL); (4 MG QD ORAL); (6 MG QD ORAL)
     Route: 048
     Dates: start: 19940707, end: 19940708
  8. RISPERDAL [Suspect]
     Indication: SCHIZOPHRENIA
     Dosage: (2 MG QD ORAL); (4 MG QD ORAL); (6 MG QD ORAL)
     Route: 048
     Dates: start: 19940709, end: 19940710
  9. NAVANE [Concomitant]
  10. LITHIUM [Concomitant]
  11. TRILAFON /00023401/ [Concomitant]

REACTIONS (21)
  - ALANINE AMINOTRANSFERASE INCREASED [None]
  - ALDOLASE INCREASED [None]
  - ASPARTATE AMINOTRANSFERASE INCREASED [None]
  - BLOOD CREATINE PHOSPHOKINASE INCREASED [None]
  - BLOOD LACTATE DEHYDROGENASE INCREASED [None]
  - DYSPNOEA [None]
  - EOSINOPHILIA [None]
  - HEPATITIS A ANTIBODY POSITIVE [None]
  - HEPATITIS C ANTIBODY POSITIVE [None]
  - HYPERHIDROSIS [None]
  - HYPOTENSION [None]
  - LABILE BLOOD PRESSURE [None]
  - LEUKOCYTOSIS [None]
  - LIVER DISORDER [None]
  - MENTAL STATUS CHANGES [None]
  - MUSCULAR WEAKNESS [None]
  - MYOSITIS [None]
  - NEUROLEPTIC MALIGNANT SYNDROME [None]
  - PLATELET MORPHOLOGY ABNORMAL [None]
  - POLYCHROMASIA [None]
  - SEPSIS [None]
